FAERS Safety Report 16095534 (Version 5)
Quarter: 2019Q3

REPORT INFORMATION
  Report Type: Report from Study
  Country: US (occurrence: US)
  Receive Date: 20190320
  Receipt Date: 20190708
  Transmission Date: 20191004
  Serious: Yes (Hospitalization)
  Sender: FDA-Public Use
  Company Number: US-EISAI MEDICAL RESEARCH-EC-2019-051346

PATIENT
  Age: 65 Year
  Sex: Male

DRUGS (10)
  1. DIPHENOXYLATE ATROPINE [Concomitant]
  2. AFINITOR [Concomitant]
     Active Substance: EVEROLIMUS
  3. LEVEMIR [Concomitant]
     Active Substance: INSULIN DETEMIR
  4. BUDESONIDE. [Concomitant]
     Active Substance: BUDESONIDE
  5. LOMOTIL [Suspect]
     Active Substance: ATROPINE SULFATE\DIPHENOXYLATE HYDROCHLORIDE
     Indication: PRODUCT USED FOR UNKNOWN INDICATION
     Dosage: DOSE AND FREQUENCY UNKNOWN
     Route: 065
  6. MULTIVITAMINS [Concomitant]
     Active Substance: VITAMINS
  7. LENVIMA [Suspect]
     Active Substance: LENVATINIB
     Indication: RENAL CANCER
     Route: 048
     Dates: start: 20190123, end: 20190312
  8. NOVOLOG [Concomitant]
     Active Substance: INSULIN ASPART
  9. LOSARTAN. [Concomitant]
     Active Substance: LOSARTAN
  10. LENVIMA [Suspect]
     Active Substance: LENVATINIB
     Route: 048
     Dates: start: 20190503

REACTIONS (14)
  - Asthenia [Recovering/Resolving]
  - Dry skin [Not Recovered/Not Resolved]
  - Gastrointestinal inflammation [Not Recovered/Not Resolved]
  - Dizziness [Recovered/Resolved]
  - Pruritus [Not Recovered/Not Resolved]
  - Rash [Not Recovered/Not Resolved]
  - Blood pressure increased [Not Recovered/Not Resolved]
  - Pancreatitis [Unknown]
  - Weight decreased [Not Recovered/Not Resolved]
  - Diarrhoea [Not Recovered/Not Resolved]
  - Dehydration [Recovering/Resolving]
  - Nausea [Not Recovered/Not Resolved]
  - Fatigue [Not Recovered/Not Resolved]
  - Decreased appetite [Not Recovered/Not Resolved]

NARRATIVE: CASE EVENT DATE: 2019
